FAERS Safety Report 19035845 (Version 1)
Quarter: 2021Q1

REPORT INFORMATION
  Report Type: Spontaneous
  Country: ES (occurrence: ES)
  Receive Date: 20210321
  Receipt Date: 20210321
  Transmission Date: 20210420
  Serious: Yes (Other)
  Sender: FDA-Public Use
  Company Number: ES-TEVA-2021-ES-1891246

PATIENT
  Age: 87 Year
  Sex: Male
  Weight: 86 kg

DRUGS (7)
  1. TAMSULOSINA CINFA 0,4 MG CAPSULAS DURAS DE LIBERACION MODIFICADA EFG , [Concomitant]
     Indication: STRESS URINARY INCONTINENCE
     Dosage: .4 MILLIGRAM DAILY;
     Route: 048
     Dates: start: 20200102
  2. CIPROFLOXACINO CINFA 500 MG COMPRIMIDOS RECUBIERTOS EFG , 14 COMPRIMID [Interacting]
     Active Substance: CIPROFLOXACIN
     Indication: URINARY TRACT INFECTION
     Dosage: 500 MILLIGRAM DAILY; 1 CAPSULE DAILY
     Route: 048
     Dates: start: 20201102
  3. ARTEDIL 10 MG COMPRIMIDOS, 28 COMPRIMIDOS [Concomitant]
     Active Substance: MANIDIPINE HYDROCHLORIDE
     Indication: HYPERTENSION
     Dosage: 10 MILLIGRAM DAILY;
     Route: 048
     Dates: start: 20000103
  4. CLOPIDOGREL CINFAMED 75 MG COMPRIMIDOS RECUBIERTOS CON PELICULA EFG, 2 [Concomitant]
     Indication: PULMONARY THROMBOSIS
     Dosage: 1 DOSAGE FORMS DAILY;
     Dates: start: 20150302
  5. ATORVASTATINA TEVAGEN 80 MG COMPRIMIDOS RECUBIERTOS CON PELICULA EFG, [Suspect]
     Active Substance: ATORVASTATIN CALCIUM
     Indication: DYSLIPIDAEMIA
     Dosage: 80 MILLIGRAM DAILY;
     Route: 048
     Dates: start: 20100301, end: 20210110
  6. LOSARTAN CINFA 100 MG COMPRIMIDOS RECUBIERTOS CON PELICULA EFG, 28 COM [Concomitant]
     Indication: HYPERTENSION
     Dosage: 100 MILLIGRAM DAILY;
     Route: 048
     Dates: start: 20000102
  7. OMEPRAZOL TEVA? PHARMA 20 MG 28 CAPSULAS [Concomitant]
     Indication: PROPHYLAXIS AGAINST GASTROINTESTINAL ULCER
     Dates: start: 20000103

REACTIONS (4)
  - Muscular weakness [Not Recovered/Not Resolved]
  - Drug interaction [Unknown]
  - Hypoaesthesia [Not Recovered/Not Resolved]
  - Tendonitis [Not Recovered/Not Resolved]

NARRATIVE: CASE EVENT DATE: 20201228
